FAERS Safety Report 8504113 (Version 4)
Quarter: 2013Q4

REPORT INFORMATION
  Report Type: Spontaneous
  Country: US (occurrence: US)
  Receive Date: 20120411
  Receipt Date: 20131021
  Transmission Date: 20140711
  Serious: Yes (Other)
  Sender: FDA-Public Use
  Company Number: US-ROCHE-1056107

PATIENT
  Age: 14 Year
  Sex: Male
  Weight: 81.72 kg

DRUGS (2)
  1. ACCUTANE [Suspect]
     Indication: ACNE
     Route: 065
     Dates: start: 19981003, end: 199903
  2. ACCUTANE [Suspect]
     Indication: ACNE

REACTIONS (3)
  - Colitis ulcerative [Unknown]
  - Sacroiliitis [Unknown]
  - Back pain [Unknown]
